FAERS Safety Report 6254848-1 (Version None)
Quarter: 2009Q3

REPORT INFORMATION
  Report Type: 
  Country: None (occurrence: None)
  Receive Date: 20090702
  Receipt Date: 20090623
  Transmission Date: 20100115
  Serious: Yes (Hospitalization, Other)
  Sender: FDA-Public Use
  Company Number: CA-ELI_LILLY_AND_COMPANY-CA200906006618

PATIENT
  Sex: Female

DRUGS (2)
  1. FORTEO [Suspect]
     Dates: start: 20080601, end: 20090401
  2. FORTEO [Suspect]
     Dates: start: 20090101

REACTIONS (2)
  - FALL [None]
  - SPINAL FRACTURE [None]
